FAERS Safety Report 4364089-0 (Version None)
Quarter: 2004Q2

REPORT INFORMATION
  Report Type: 
  Country: None (occurrence: None)
  Receive Date: 20040525
  Receipt Date: 20030729
  Transmission Date: 20050107
  Serious: Yes (Other)
  Sender: FDA-Public Use
  Company Number: GB-BRISTOL-MYERS SQUIBB COMPANY-12339206

PATIENT
  Age: 42 Year
  Sex: Male

DRUGS (3)
  1. ATAZANAVIR [Suspect]
     Indication: HIV INFECTION
     Route: 048
     Dates: start: 20030408
  2. TESTOSTERONE [Concomitant]
     Dates: start: 20030508
  3. ONDANSETRON [Concomitant]
     Dates: start: 20030408

REACTIONS (1)
  - BLOOD CREATINE PHOSPHOKINASE INCREASED [None]
